FAERS Safety Report 4309642-5 (Version None)
Quarter: 2004Q1

REPORT INFORMATION
  Report Type: 
  Country: None (occurrence: None)
  Receive Date: 20040301
  Receipt Date: 20040217
  Transmission Date: 20041129
  Serious: No
  Sender: FDA-Public Use
  Company Number: 04P-122-0250769-00

PATIENT
  Sex: Female

DRUGS (7)
  1. HUMIRA [Suspect]
     Dosage: 40 MG, SUBCUTANEOUS
     Route: 058
     Dates: start: 20040131
  2. PREDNISOLONE [Concomitant]
  3. DICLOFENAC [Concomitant]
  4. RIVOTIN [Concomitant]
  5. ACETYLSALICYLIC ACID [Concomitant]
  6. LANCO [Concomitant]
  7. OXAZEPAM [Concomitant]

REACTIONS (2)
  - DYSPHAGIA [None]
  - DYSPNOEA [None]
